FAERS Safety Report 10586332 (Version 2)
Quarter: 2014Q4

REPORT INFORMATION
  Report Type: Spontaneous
  Country: US (occurrence: US)
  Receive Date: 20141117
  Receipt Date: 20141117
  Transmission Date: 20150529
  Serious: No
  Sender: FDA-Public Use
  Company Number: US-HORIZON-DUE-0047-2014

PATIENT
  Age: 55 Year
  Sex: Female

DRUGS (7)
  1. CLEOSIN [Concomitant]
  2. CRESTOR [Concomitant]
     Active Substance: ROSUVASTATIN CALCIUM
  3. TALWIN [Concomitant]
     Active Substance: PENTAZOCINE LACTATE
  4. LISINOPRIL. [Concomitant]
     Active Substance: LISINOPRIL
  5. ZOFRAN [Concomitant]
     Active Substance: ONDANSETRON HYDROCHLORIDE
     Route: 048
  6. DUEXIS [Suspect]
     Active Substance: FAMOTIDINE\IBUPROFEN
     Indication: POST PROCEDURAL INFLAMMATION
     Dates: start: 20140701
  7. BONZIP [Concomitant]

REACTIONS (2)
  - Hypersensitivity [Unknown]
  - Palpitations [Unknown]

NARRATIVE: CASE EVENT DATE: 201407
